FAERS Safety Report 25220530 (Version 3)
Quarter: 2025Q3

REPORT INFORMATION
  Report Type: Report from Study
  Country: US (occurrence: US)
  Receive Date: 20250421
  Receipt Date: 20250803
  Transmission Date: 20251021
  Serious: Yes (Other)
  Sender: ALEXION PHARMACEUTICALS
  Company Number: US-AstraZeneca-CH-00800727A

PATIENT
  Age: 67 Year
  Sex: Female
  Weight: 100.68 kg

DRUGS (1)
  1. ACALABRUTINIB [Suspect]
     Active Substance: ACALABRUTINIB
     Indication: Product used for unknown indication
     Dosage: 100 MILLIGRAM, BID
     Dates: start: 20210713

REACTIONS (5)
  - Endometrial cancer [Unknown]
  - Uterine leiomyoma [Unknown]
  - Adenomyosis [Unknown]
  - Uterine cancer [Unknown]
  - Intentional dose omission [Unknown]

NARRATIVE: CASE EVENT DATE: 20250130
